FAERS Safety Report 15575769 (Version 4)
Quarter: 2019Q1

REPORT INFORMATION
  Report Type: Report from Study
  Country: US (occurrence: US)
  Receive Date: 20181101
  Receipt Date: 20190325
  Transmission Date: 20190417
  Serious: Yes (Life-Threatening, Other)
  Sender: FDA-Public Use
  Company Number: US-OTSUKA-2018_033495

PATIENT
  Age: 62 Year
  Sex: Female

DRUGS (11)
  1. SYNTHROID [Concomitant]
     Active Substance: LEVOTHYROXINE SODIUM
     Indication: HYPOTHYROIDISM
     Dosage: 88 ?G, (1 TABLET DALIY FOR 6 DAYS A WEEK, ALTERING WITH 2 TABLETS 1 DAY A WEEK)
     Route: 065
  2. LIFITEGRAST [Concomitant]
     Active Substance: LIFITEGRAST
     Indication: LACRIMATION DECREASED
     Dosage: 5 %, BID,1 DROP INTO AFFECTED EYE(S
     Route: 065
  3. OMEGA-3 ACIDS [Concomitant]
     Active Substance: OMEGA-3 FATTY ACIDS
     Indication: PRODUCT USED FOR UNKNOWN INDICATION
     Dosage: 1300 MG, BID
     Route: 048
  4. LIPITOR [Concomitant]
     Active Substance: ATORVASTATIN CALCIUM
     Indication: HYPERCHOLESTEROLAEMIA
     Dosage: UNK
     Route: 065
     Dates: end: 20181010
  5. LIPITOR [Concomitant]
     Active Substance: ATORVASTATIN CALCIUM
     Dosage: 20 MG, QD
     Route: 048
  6. TOLVAPTAN [Suspect]
     Active Substance: TOLVAPTAN
     Indication: CONGENITAL CYSTIC KIDNEY DISEASE
     Dosage: 45 MG QD (UPON WAKING)
     Route: 048
     Dates: start: 20180531, end: 20181010
  7. OSCAL D [Concomitant]
     Active Substance: CALCIUM CARBONATE\CHOLECALCIFEROL
     Dosage: 40000 UNITS/WEEK
     Route: 065
  8. TOLVAPTAN [Suspect]
     Active Substance: TOLVAPTAN
     Dosage: 15 MG QD (8 HOURS LATER)
     Route: 048
     Dates: start: 20180531, end: 20181010
  9. LIPITOR [Concomitant]
     Active Substance: ATORVASTATIN CALCIUM
     Dosage: 10 MG, QD
     Route: 048
  10. ALISKIREN [Concomitant]
     Active Substance: ALISKIREN
     Indication: HYPERTENSION
     Dosage: 150 MG, QD
     Route: 048
  11. OSCAL D [Concomitant]
     Active Substance: CALCIUM CARBONATE\CHOLECALCIFEROL
     Indication: BONE METABOLISM DISORDER
     Dosage: 1 DF, QD
     Route: 048

REACTIONS (2)
  - Blood potassium increased [Unknown]
  - Liver injury [Not Recovered/Not Resolved]

NARRATIVE: CASE EVENT DATE: 20181001
